FAERS Safety Report 6245856-5 (Version None)
Quarter: 2009Q2

REPORT INFORMATION
  Report Type: 
  Country: None (occurrence: None)
  Receive Date: 20090626
  Receipt Date: 20090622
  Transmission Date: 20091009
  Serious: Yes (Hospitalization, Other)
  Sender: FDA-Public Use
  Company Number: DE-BAYER-200920556GPV

PATIENT
  Age: 49 Year
  Sex: Female

DRUGS (1)
  1. BETAFERON [Suspect]
     Indication: RELAPSING-REMITTING MULTIPLE SCLEROSIS
     Route: 058
     Dates: start: 20090101, end: 20090501

REACTIONS (8)
  - ALANINE AMINOTRANSFERASE INCREASED [None]
  - ANTINUCLEAR ANTIBODY POSITIVE [None]
  - ASPARTATE AMINOTRANSFERASE INCREASED [None]
  - PAIN IN EXTREMITY [None]
  - PERIPHERAL ISCHAEMIA [None]
  - PERIPHERAL VASCULAR DISORDER [None]
  - RAYNAUD'S PHENOMENON [None]
  - THORACIC OUTLET SYNDROME [None]
